FAERS Safety Report 9418869 (Version 2)
Quarter: 2013Q3

REPORT INFORMATION
  Report Type: Spontaneous
  Country: CA (occurrence: CA)
  Receive Date: 20130725
  Receipt Date: 20130827
  Transmission Date: 20140515
  Serious: Yes (Death, Hospitalization, Other)
  Sender: FDA-Public Use
  Company Number: CA-JNJFOC-20130711933

PATIENT
  Age: 85 Year
  Sex: Female

DRUGS (9)
  1. XARELTO [Suspect]
     Indication: CEREBROVASCULAR ACCIDENT PROPHYLAXIS
     Route: 048
     Dates: start: 2012, end: 2012
  2. XARELTO [Suspect]
     Indication: ATRIAL FIBRILLATION
     Route: 048
     Dates: start: 2012, end: 2012
  3. AMILORIDE HYDROCHLORIDE [Concomitant]
     Route: 065
  4. ZAROXOLYN [Concomitant]
     Route: 065
  5. DIGOXIN [Concomitant]
     Route: 065
  6. LASIX [Concomitant]
     Route: 065
  7. PANTOPRAZOLE [Concomitant]
     Route: 065
  8. ALLOPURINOL [Concomitant]
     Route: 065
  9. BISOPROLOL [Concomitant]
     Route: 065

REACTIONS (4)
  - Renal failure [Fatal]
  - Epistaxis [Fatal]
  - Mouth haemorrhage [Fatal]
  - Cardiac failure [Fatal]
